FAERS Safety Report 7577338-2 (Version None)
Quarter: 2011Q2

REPORT INFORMATION
  Report Type: 
  Country: None (occurrence: None)
  Receive Date: 20110628
  Receipt Date: 20110613
  Transmission Date: 20111010
  Serious: Yes (Death, Other)
  Sender: FDA-Public Use
  Company Number: US-BAYER-201041658NA

PATIENT
  Age: 78 Year
  Sex: Male
  Weight: 95 kg

DRUGS (11)
  1. TRASYLOL [Suspect]
     Indication: MITRAL VALVE REPAIR
  2. ACTOS [Concomitant]
  3. REGLAN [Concomitant]
     Dosage: 10 MG, UNK
     Dates: start: 20050127
  4. CAPTOPRIL [Concomitant]
  5. PEPCID [Concomitant]
     Dosage: 20 MG, UNK
     Dates: start: 20050127
  6. ZOCOR [Concomitant]
  7. AMBIEN [Concomitant]
  8. TRASYLOL [Suspect]
     Indication: CORONARY ARTERY BYPASS
     Dosage: 200 ML, UNK
     Route: 042
     Dates: start: 20050126
  9. VERSED [Concomitant]
     Dosage: 1 MG, UNK
     Dates: start: 20050127
  10. SCOPOLAMINE [Concomitant]
     Dosage: 4 MG, UNK
     Dates: start: 20050127
  11. LOVENOX [Concomitant]

REACTIONS (17)
  - UNEVALUABLE EVENT [None]
  - ARRHYTHMIA [None]
  - EMOTIONAL DISTRESS [None]
  - ISCHAEMIC CARDIOMYOPATHY [None]
  - STRESS [None]
  - DIALYSIS [None]
  - RENAL FAILURE [None]
  - ANXIETY [None]
  - RENAL INJURY [None]
  - CARDIAC ARREST [None]
  - DEATH [None]
  - MULTI-ORGAN FAILURE [None]
  - HYPOTENSION [None]
  - RENAL IMPAIRMENT [None]
  - FEAR [None]
  - PAIN [None]
  - RESPIRATORY FAILURE [None]
